FAERS Safety Report 9653871 (Version 1)
Quarter: 2013Q4

REPORT INFORMATION
  Report Type: Spontaneous
  Country: US (occurrence: None)
  Receive Date: 20131028
  Receipt Date: 20131028
  Transmission Date: 20140711
  Serious: Yes (Death)
  Sender: FDA-Public Use
  Company Number: 2013-US-002249

PATIENT
  Age: 81 Year
  Sex: Female

DRUGS (1)
  1. FAZACLO ODT(CLOZAPINE) TABLET, 100MG [Suspect]
     Indication: SCHIZOPHRENIA
     Route: 048
     Dates: start: 20100901

REACTIONS (1)
  - Death [None]
